FAERS Safety Report 8200900-0 (Version None)
Quarter: 2012Q1

REPORT INFORMATION
  Report Type: 
  Country: None (occurrence: None)
  Receive Date: 20120312
  Receipt Date: 20110627
  Transmission Date: 20120608
  Serious: Yes (Other)
  Sender: FDA-Public Use
  Company Number: US-ABBOTT-11P-163-0834709-00

PATIENT
  Sex: Female

DRUGS (1)
  1. LUPRON DEPOT [Suspect]
     Indication: ENDOMETRIOSIS
     Dates: start: 20110412

REACTIONS (5)
  - MENSTRUAL DISORDER [None]
  - INJECTION SITE INFECTION [None]
  - INJECTION SITE NODULE [None]
  - OEDEMA PERIPHERAL [None]
  - INJECTION SITE WARMTH [None]
